FAERS Safety Report 13505723 (Version 1)
Quarter: 2017Q2

REPORT INFORMATION
  Report Type: Spontaneous
  Country: US (occurrence: US)
  Receive Date: 20170502
  Receipt Date: 20170502
  Transmission Date: 20170830
  Serious: No
  Sender: FDA-Public Use
  Company Number: US-ASTRAZENECA-2016SE46336

PATIENT
  Age: 68 Year
  Sex: Female
  Weight: 81.6 kg

DRUGS (6)
  1. METFORMIN [Concomitant]
     Active Substance: METFORMIN HYDROCHLORIDE
     Indication: TYPE 2 DIABETES MELLITUS
     Route: 048
  2. BYETTA [Suspect]
     Active Substance: EXENATIDE
     Indication: TYPE 2 DIABETES MELLITUS
     Dosage: 10UG,TWO TIMES A DAY
     Route: 058
  3. BYDUREON [Suspect]
     Active Substance: EXENATIDE
     Indication: TYPE 2 DIABETES MELLITUS
     Route: 058
     Dates: start: 2016
  4. URSODIOL. [Concomitant]
     Active Substance: URSODIOL
     Indication: HEPATIC CIRRHOSIS
     Route: 048
  5. SIMVASTATIN. [Concomitant]
     Active Substance: SIMVASTATIN
     Indication: BLOOD CHOLESTEROL ABNORMAL
     Route: 048
  6. RAMIPRIL. [Concomitant]
     Active Substance: RAMIPRIL
     Indication: RENAL DISORDER
     Route: 048

REACTIONS (3)
  - Injection site discolouration [Recovering/Resolving]
  - Injection site mass [Not Recovered/Not Resolved]
  - Diarrhoea [Recovered/Resolved]

NARRATIVE: CASE EVENT DATE: 2016
